FAERS Safety Report 9649487 (Version 1)
Quarter: 2013Q4

REPORT INFORMATION
  Report Type: Spontaneous
  Country: IT (occurrence: IT)
  Receive Date: 20131028
  Receipt Date: 20131028
  Transmission Date: 20140711
  Serious: Yes (Hospitalization)
  Sender: FDA-Public Use
  Company Number: IT-TAKEDA-2013TUS001740

PATIENT
  Sex: 0

DRUGS (1)
  1. ADENURIC [Suspect]
     Indication: HYPERURICAEMIA
     Dosage: 40 MG,1 IN 1 TOTAL
     Route: 048
     Dates: start: 20130711, end: 20130711

REACTIONS (1)
  - Anuria [Recovered/Resolved]
